FAERS Safety Report 6526206-3 (Version None)
Quarter: 2009Q4

REPORT INFORMATION
  Report Type: 
  Country: None (occurrence: None)
  Receive Date: 20091228
  Receipt Date: 20091215
  Transmission Date: 20100525
  Serious: Yes (Hospitalization)
  Sender: FDA-Public Use
  Company Number: RENA-1000607

PATIENT
  Sex: Male

DRUGS (1)
  1. RENAGEL [Suspect]
     Indication: HYPERPHOSPHATAEMIA
     Dosage: 0.8 G, TID, ORAL; 1.6 G, TID, ORAL; 2.4 G, TID, ORAL; 0.8G, TID, ORAL
     Route: 048
     Dates: start: 20080901, end: 20090801

REACTIONS (3)
  - CONDITION AGGRAVATED [None]
  - DIABETES MELLITUS [None]
  - IMPAIRED GASTRIC EMPTYING [None]
